FAERS Safety Report 5696523-8 (Version None)
Quarter: 2008Q2

REPORT INFORMATION
  Report Type: 
  Country: None (occurrence: None)
  Receive Date: 20080408
  Receipt Date: 20080326
  Transmission Date: 20081010
  Serious: Yes (Death, Other)
  Sender: FDA-Public Use
  Company Number: JP-JNJFOC-20080200335

PATIENT
  Sex: Female

DRUGS (8)
  1. DORIBAX [Suspect]
     Indication: ENDOCARDITIS
     Route: 041
  2. KAKODIN [Concomitant]
     Indication: HYPOTENSION
     Route: 041
  3. VANCOMYCIN [Concomitant]
     Indication: ENDOCARDITIS
     Route: 041
  4. RYTHMODAN P [Concomitant]
     Indication: ENDOCARDITIS
     Route: 042
  5. MEYLON [Concomitant]
     Indication: METABOLIC ACIDOSIS
     Route: 041
  6. XYLOCAINE [Concomitant]
     Indication: ENDOCARDITIS
     Route: 042
  7. NOR-ADRENALIN [Concomitant]
     Indication: HYPOTENSION
     Route: 041
  8. OMEPRAL [Concomitant]
     Indication: PROPHYLAXIS
     Route: 042

REACTIONS (6)
  - ALANINE AMINOTRANSFERASE INCREASED [None]
  - ASPARTATE AMINOTRANSFERASE INCREASED [None]
  - BLOOD BILIRUBIN INCREASED [None]
  - BLOOD LACTATE DEHYDROGENASE INCREASED [None]
  - ENDOCARDITIS [None]
  - PLATELET COUNT DECREASED [None]
